FAERS Safety Report 23116314 (Version 2)
Quarter: 2023Q4

REPORT INFORMATION
  Report Type: Report from Study
  Country: US (occurrence: US)
  Receive Date: 20231027
  Receipt Date: 20231228
  Transmission Date: 20240109
  Serious: Yes (Other)
  Sender: FDA-Public Use
  Company Number: US-BRIAN CONNER SVP QUALITY AND CHIEF COMPLIANCE OFFICER-2023XER01909

PATIENT
  Sex: Male
  Weight: 52.562 kg

DRUGS (10)
  1. KEVEYIS [Suspect]
     Active Substance: DICHLORPHENAMIDE
     Indication: Familial periodic paralysis
     Dosage: 1 TABLET (50 MG), 2X/DAY
     Route: 048
     Dates: start: 20230427, end: 20230506
  2. KEVEYIS [Suspect]
     Active Substance: DICHLORPHENAMIDE
     Dosage: 1/2 TABLET (25 MG), 2X/DAY
     Route: 048
     Dates: start: 20230507, end: 202305
  3. KEVEYIS [Suspect]
     Active Substance: DICHLORPHENAMIDE
     Dosage: 1/2 TABLET (25 MG), 1X/DAY
     Route: 048
     Dates: start: 202305, end: 202305
  4. KEVEYIS [Suspect]
     Active Substance: DICHLORPHENAMIDE
     Dosage: 1/2 TABLET (25 MG), 2X/DAY
     Route: 048
     Dates: start: 202305, end: 2023
  5. KEVEYIS [Suspect]
     Active Substance: DICHLORPHENAMIDE
     Dosage: 1 TABLET (50 MG), 2X/DAY
     Route: 048
     Dates: start: 20230818, end: 2023
  6. KEVEYIS [Suspect]
     Active Substance: DICHLORPHENAMIDE
     Dosage: 1/2 TABLET (25 MG), 2X/DAY
     Route: 048
     Dates: start: 2023
  7. VITAMIN B COMPLEX [Suspect]
     Active Substance: CYANOCOBALAMIN\DEXPANTHENOL\NIACINAMIDE\PYRIDOXINE HYDROCHLORIDE\RIBOFLAVIN 5^-PHOSPHATE SODIUM\THIA
  8. VITAMIN D NOS [Suspect]
     Active Substance: VITAMIN D NOS
  9. UNSPECIFIED INGREDIENT [Suspect]
     Active Substance: UNSPECIFIED INGREDIENT
  10. KLONOPIN [Concomitant]
     Active Substance: CLONAZEPAM
     Dosage: 0.5 MG, 2X/DAY AS NEEDED; HE ONLY TAKES IT ONCE A DAY EVERY 1-2 DAYS

REACTIONS (34)
  - Central serous chorioretinopathy [Recovered/Resolved]
  - Vision blurred [Recovering/Resolving]
  - Urine abnormality [Recovered/Resolved]
  - Increased appetite [Recovering/Resolving]
  - Pain [Recovering/Resolving]
  - Chills [Recovered/Resolved]
  - Sciatica [Recovering/Resolving]
  - Myalgia [Recovering/Resolving]
  - Neuralgia [Recovering/Resolving]
  - Chest discomfort [Recovered/Resolved]
  - Chest pain [Recovered/Resolved]
  - Asthenia [Recovered/Resolved]
  - Hypopnoea [Recovered/Resolved]
  - Muscular weakness [Recovering/Resolving]
  - Influenza [Recovering/Resolving]
  - Panic attack [Not Recovered/Not Resolved]
  - Dyspepsia [Recovered/Resolved]
  - Sensitivity to weather change [Recovering/Resolving]
  - Abdominal discomfort [Unknown]
  - Balance disorder [Recovering/Resolving]
  - Anxiety [Not Recovered/Not Resolved]
  - Intentional product use issue [Recovered/Resolved]
  - Paraesthesia [Recovering/Resolving]
  - Weight decreased [Recovering/Resolving]
  - Burning sensation [Recovering/Resolving]
  - Headache [Recovering/Resolving]
  - Arthralgia [Recovering/Resolving]
  - Muscle spasms [Recovering/Resolving]
  - Blood potassium decreased [Recovering/Resolving]
  - Nausea [Recovering/Resolving]
  - Dizziness [Recovering/Resolving]
  - Diarrhoea [Recovering/Resolving]
  - Hypoaesthesia [Recovering/Resolving]
  - Paralysis [Recovered/Resolved]

NARRATIVE: CASE EVENT DATE: 20230101
